FAERS Safety Report 7386943-8 (Version None)
Quarter: 2011Q1

REPORT INFORMATION
  Report Type: 
  Country: None (occurrence: None)
  Receive Date: 20110331
  Receipt Date: 20110322
  Transmission Date: 20110831
  Serious: Yes (Hospitalization)
  Sender: FDA-Public Use
  Company Number: US-ALEXION-A201000903

PATIENT
  Sex: Female
  Weight: 70 kg

DRUGS (9)
  1. SOLIRIS [Suspect]
     Indication: PAROXYSMAL NOCTURNAL HAEMOGLOBINURIA
     Dosage: 900 MG, Q2W
     Route: 042
     Dates: start: 20070617
  2. TYLENOL W/ CODEINE NO. 3 [Concomitant]
     Indication: PAIN
     Dosage: UNK, Q4-6HR/PRN
  3. ASPIRIN [Concomitant]
     Indication: THROMBOSIS PROPHYLAXIS
     Dosage: 81 MG, QD
     Route: 048
  4. ESTRADIOL [Concomitant]
     Indication: OVARIAN FAILURE
     Dosage: .05 MG, 2X/WK
     Route: 062
  5. NORMAL SALINE [Concomitant]
     Dosage: 1000 ML, QD
     Route: 042
  6. ENOXAPARIN [Concomitant]
     Indication: THROMBOSIS PROPHYLAXIS
     Dosage: 600 MG, Q12HR
     Route: 058
  7. DEFEROXAMINE MESYLATE [Concomitant]
     Indication: IRON OVERLOAD
     Dosage: 1000 MG, BID
  8. FOLIC ACID [Concomitant]
     Indication: HAEMOLYSIS
     Dosage: 1 MG, QD
     Route: 048
  9. LEVOTHYROXINE SODIUM [Concomitant]
     Indication: HYPOTHYROIDISM
     Dosage: 100 UG, QD
     Route: 048

REACTIONS (3)
  - DEVICE RELATED INFECTION [None]
  - PSEUDOMONAS INFECTION [None]
  - MENTAL STATUS CHANGES [None]
